FAERS Safety Report 5427580-1 (Version None)
Quarter: 2007Q3

REPORT INFORMATION
  Report Type: 
  Country: None (occurrence: None)
  Receive Date: 20070828
  Receipt Date: 20070820
  Transmission Date: 20080115
  Serious: Yes (Death)
  Sender: FDA-Public Use
  Company Number: B0484296A

PATIENT

DRUGS (4)
  1. TOPOTECAN [Suspect]
     Dosage: 1.5MGM2 CYCLIC
     Route: 048
  2. PACLITAXEL [Suspect]
     Dosage: 110MGM2 CYCLIC
     Route: 042
  3. ETOPOSIDE [Suspect]
     Dosage: 160MGM2 CYCLIC
     Route: 048
  4. FILGRASTIM [Concomitant]
     Route: 058

REACTIONS (2)
  - CAECITIS [None]
  - FEBRILE NEUTROPENIA [None]
